FAERS Safety Report 10396954 (Version 6)
Quarter: 2015Q2

REPORT INFORMATION
  Report Type: Spontaneous
  Country: US (occurrence: US)
  Receive Date: 20140820
  Receipt Date: 20150525
  Transmission Date: 20150821
  Serious: Yes (Hospitalization, Other)
  Sender: FDA-Public Use
  Company Number: US-JNJFOC-20140809081

PATIENT
  Sex: Female

DRUGS (1)
  1. RISPERDAL [Suspect]
     Active Substance: RISPERIDONE
     Indication: BIPOLAR DISORDER
     Route: 048
     Dates: start: 201108

REACTIONS (18)
  - Pituitary tumour [Not Recovered/Not Resolved]
  - Trousseau^s sign [Unknown]
  - Meningeal disorder [Unknown]
  - Urine calcium [Unknown]
  - Hospitalisation [Unknown]
  - Endocrine disorder [Unknown]
  - Pancreatic disorder [Unknown]
  - Visual impairment [Unknown]
  - Type 2 diabetes mellitus [Unknown]
  - Urine phosphorus abnormal [Unknown]
  - Urinary incontinence [Unknown]
  - Chvostek^s sign [Unknown]
  - Calcium ionised [Unknown]
  - Menorrhagia [Unknown]
  - Mania [Unknown]
  - Adenomyosis [Recovered/Resolved]
  - Faecal incontinence [Unknown]
  - Carpal tunnel syndrome [Unknown]

NARRATIVE: CASE EVENT DATE: 2011
